FAERS Safety Report 9183859 (Version 1)
Quarter: 2013Q1

REPORT INFORMATION
  Report Type: Spontaneous
  Country: US (occurrence: US)
  Receive Date: 20130322
  Receipt Date: 20130322
  Transmission Date: 20140127
  Serious: Yes (Hospitalization)
  Sender: FDA-Public Use
  Company Number: US-BRISTOL-MYERS SQUIBB COMPANY-16640591

PATIENT
  Age: 68 Year
  Sex: Female

DRUGS (1)
  1. ERBITUX [Suspect]
     Indication: LUNG NEOPLASM MALIGNANT
     Dosage: LASTINF ON:21MAY12,2VIAL200MG/100ML;LOT#10C00614B,EXP:JAN14+1VIAL100MG/50ML LOT#10C00198E EXP:JUN13
     Dates: start: 20120514

REACTIONS (1)
  - Adverse event [Unknown]
